FAERS Safety Report 9375527 (Version 2)
Quarter: 2013Q3

REPORT INFORMATION
  Report Type: Report from Study
  Country: BR (occurrence: BR)
  Receive Date: 20130628
  Receipt Date: 20130716
  Transmission Date: 20140515
  Serious: Yes (Hospitalization, Other)
  Sender: FDA-Public Use
  Company Number: PHHY2013BR066532

PATIENT
  Age: 22 Year
  Sex: Male
  Weight: 63 kg

DRUGS (6)
  1. MYCOPHENOLATE [Suspect]
     Dosage: 1440 MG PER DAY
  2. MYCOPHENOLATE [Suspect]
     Dosage: 1800 MG, UNK
  3. TACROLIMUS SANDOZ [Suspect]
     Dosage: 6 MG, UNK
  4. PREDNISONE SANDOZ [Suspect]
     Dosage: 20 MG, A DAY
  5. EVEROLIMUS [Suspect]
  6. CORTICOSTEROIDS [Suspect]

REACTIONS (4)
  - Haemolytic uraemic syndrome [Unknown]
  - Renal impairment [Unknown]
  - Thrombocytopenia [Unknown]
  - Complications of transplanted kidney [Recovered/Resolved]
